FAERS Safety Report 9744829 (Version 3)
Quarter: 2015Q4

REPORT INFORMATION
  Report Type: Report from Study
  Country: US (occurrence: US)
  Receive Date: 20131211
  Receipt Date: 20151102
  Transmission Date: 20160305
  Serious: Yes (Other)
  Sender: FDA-Public Use
  Company Number: US-ROCHE-1283878

PATIENT
  Age: 76 Year
  Sex: Female

DRUGS (9)
  1. AVASTIN [Suspect]
     Active Substance: BEVACIZUMAB
     Indication: IMPAIRED HEALING
     Dosage: OU
     Route: 050
  2. GABAPENTIN. [Concomitant]
     Active Substance: GABAPENTIN
     Indication: ARTHRITIS
  3. DIOVAN [Concomitant]
     Active Substance: VALSARTAN
     Indication: HYPERTENSION
  4. GABAPENTIN. [Concomitant]
     Active Substance: GABAPENTIN
     Indication: ARTHRITIS
  5. LUCENTIS [Suspect]
     Active Substance: RANIBIZUMAB
     Indication: IMPAIRED HEALING
     Dosage: BOTH THE EYES
     Route: 050
     Dates: start: 2013, end: 201311
  6. COLCRYS [Concomitant]
     Active Substance: COLCHICINE
     Indication: GOUT
     Route: 065
  7. LUCENTIS [Suspect]
     Active Substance: RANIBIZUMAB
     Indication: DIABETIC RETINAL OEDEMA
  8. DILTIAZEM [Concomitant]
     Active Substance: DILTIAZEM
     Indication: HYPERTENSION
     Route: 065
  9. QUINAPRIL [Concomitant]
     Active Substance: QUINAPRIL\QUINAPRIL HYDROCHLORIDE
     Indication: HYPERTENSION

REACTIONS (6)
  - Amnesia [Unknown]
  - Lacrimation increased [Recovered/Resolved]
  - Injection site pain [Recovered/Resolved]
  - Product use issue [Unknown]
  - Transient ischaemic attack [Unknown]
  - Memory impairment [Not Recovered/Not Resolved]

NARRATIVE: CASE EVENT DATE: 201311
